FAERS Safety Report 4444935-2 (Version None)
Quarter: 2004Q3

REPORT INFORMATION
  Report Type: 
  Country: None (occurrence: None)
  Receive Date: 20040909
  Receipt Date: 20040729
  Transmission Date: 20050211
  Serious: Yes (Hospitalization)
  Sender: FDA-Public Use
  Company Number: DE-ROCHE-375868

PATIENT
  Age: 66 Year
  Sex: Female
  Weight: 67 kg

DRUGS (7)
  1. GRANISETRON HYDROCHLORIDE [Suspect]
     Indication: ANTIEMETIC SUPPORTIVE CARE
     Route: 048
  2. GRANISETRON HYDROCHLORIDE [Suspect]
     Route: 048
     Dates: start: 20040518, end: 20040518
  3. INVESTIGATIONAL DRUG [Suspect]
     Indication: COLORECTAL CANCER METASTATIC
     Dosage: STUDY DRUG: PTK787/ZK222584 VS PLACEBO.
     Route: 065
     Dates: start: 20040316
  4. MORPHINE [Suspect]
     Indication: DRUG USE FOR UNKNOWN INDICATION
     Route: 065
  5. OXALIPLATIN [Concomitant]
     Dates: start: 20040316
  6. FLUOROURACIL [Concomitant]
     Dates: start: 20040316
  7. LEUCOVORIN CALCIUM [Concomitant]
     Dates: start: 20040316

REACTIONS (2)
  - CONSTIPATION [None]
  - INTESTINAL OBSTRUCTION [None]
